FAERS Safety Report 4749700-4 (Version None)
Quarter: 2005Q3

REPORT INFORMATION
  Report Type: 
  Country: None (occurrence: None)
  Receive Date: 20050822
  Receipt Date: 20050426
  Transmission Date: 20060218
  Serious: Yes (Death, Hospitalization, Other)
  Sender: FDA-Public Use
  Company Number: US-MERCK-0504USA04804

PATIENT
  Age: 62 Year
  Sex: Male
  Weight: 82 kg

DRUGS (2)
  1. VIOXX [Suspect]
     Indication: RHEUMATOID ARTHRITIS
     Route: 048
     Dates: start: 20011022, end: 20020720
  2. NICOTINE [Concomitant]
     Route: 065

REACTIONS (32)
  - ABDOMINAL PAIN [None]
  - ABDOMINAL PAIN UPPER [None]
  - ACUTE RESPIRATORY FAILURE [None]
  - ANAEMIA [None]
  - ANOREXIA [None]
  - ATELECTASIS [None]
  - ATRIAL FIBRILLATION [None]
  - CARDIAC ARREST [None]
  - CARDIAC FAILURE CONGESTIVE [None]
  - CARDIOMYOPATHY [None]
  - CEREBROVASCULAR ACCIDENT [None]
  - CORONARY ARTERY DISEASE [None]
  - DEATH [None]
  - DEPRESSION [None]
  - DIZZINESS [None]
  - DYSPEPSIA [None]
  - EFFUSION [None]
  - ELECTROCARDIOGRAM T WAVE ABNORMAL [None]
  - ELECTROLYTE IMBALANCE [None]
  - HYPOTENSION [None]
  - ILEUS [None]
  - LUNG INFILTRATION [None]
  - MALAISE [None]
  - MIGRAINE [None]
  - MITRAL VALVE INCOMPETENCE [None]
  - MYOCARDIAL INFARCTION [None]
  - MYOCLONIC EPILEPSY [None]
  - NOCTURIA [None]
  - PANCREATITIS [None]
  - POSTPERICARDIOTOMY SYNDROME [None]
  - PSEUDOCYST [None]
  - WEIGHT DECREASED [None]
